FAERS Safety Report 18054062 (Version 2)
Quarter: 2023Q2

REPORT INFORMATION
  Report Type: Spontaneous
  Country: US (occurrence: US)
  Receive Date: 20200722
  Receipt Date: 20230518
  Transmission Date: 20230722
  Serious: Yes (Other)
  Sender: FDA-Public Use
  Company Number: US-PFIZER INC-2020279105

PATIENT
  Age: 85 Year
  Sex: Female

DRUGS (2)
  1. IBRANCE [Suspect]
     Active Substance: PALBOCICLIB
     Indication: Breast cancer female
     Dosage: 125 MG, 1X/DAY
     Route: 048
  2. IBRANCE [Suspect]
     Active Substance: PALBOCICLIB
     Indication: Breast cancer stage IV

REACTIONS (14)
  - Thrombosis [Unknown]
  - Second primary malignancy [Unknown]
  - Colon cancer stage I [Unknown]
  - Neoplasm progression [Unknown]
  - Lymphadenopathy [Unknown]
  - Alopecia [Unknown]
  - Senile osteoporosis [Unknown]
  - Essential hypertension [Unknown]
  - Intervertebral disc disorder [Unknown]
  - Hyperlipidaemia [Unknown]
  - Herpes zoster [Unknown]
  - Rosacea [Unknown]
  - Bone disorder [Unknown]
  - Insomnia [Unknown]
